APPROVED DRUG PRODUCT: ATRACURIUM BESYLATE PRESERVATIVE FREE
Active Ingredient: ATRACURIUM BESYLATE
Strength: 10MG/ML
Dosage Form/Route: INJECTABLE;INJECTION
Application: A206001 | Product #001
Applicant: PHARMOBEDIENT CONSULTING LLC
Approved: Apr 7, 2017 | RLD: No | RS: No | Type: DISCN